FAERS Safety Report 5125111-7 (Version None)
Quarter: 2006Q4

REPORT INFORMATION
  Report Type: 
  Country: None (occurrence: None)
  Receive Date: 20061011
  Receipt Date: 20060912
  Transmission Date: 20070319
  Serious: Yes (Other)
  Sender: FDA-Public Use
  Company Number: PHBS2006JP14235

PATIENT
  Sex: Female

DRUGS (1)
  1. ZOMETA [Suspect]
     Route: 042

REACTIONS (3)
  - COAGULATION FACTOR VIII LEVEL INCREASED [None]
  - COAGULOPATHY [None]
  - VON WILLEBRAND'S FACTOR ANTIGEN INCREASED [None]
